FAERS Safety Report 7232955-4 (Version None)
Quarter: 2011Q1

REPORT INFORMATION
  Report Type: 
  Country: None (occurrence: None)
  Receive Date: 20110119
  Receipt Date: 20110106
  Transmission Date: 20110831
  Serious: Yes (Other)
  Sender: FDA-Public Use
  Company Number: JP-ELI_LILLY_AND_COMPANY-JP201011000918

PATIENT
  Sex: Male

DRUGS (9)
  1. DEPAKENE [Concomitant]
     Dosage: 400 MG, 2/D
     Route: 048
     Dates: start: 20080220, end: 20080617
  2. NORVIR [Concomitant]
     Indication: HIV INFECTION
     Dosage: 100 MG, DAILY (1/D)
     Route: 048
     Dates: start: 19970101
  3. VIREAD [Concomitant]
     Indication: HIV INFECTION
     Dosage: 300 MG, DAILY (1/D)
     Route: 048
     Dates: start: 19970101
  4. REYATAZ [Concomitant]
     Indication: HIV INFECTION
     Dosage: 300 MG, DAILY (1/D)
     Route: 048
     Dates: start: 19970101
  5. GEMZAR [Suspect]
     Dosage: 800 MG/M2, OTHER
     Route: 042
     Dates: start: 20080508, end: 20080617
  6. CISPLATIN [Concomitant]
     Indication: LUNG ADENOCARCINOMA STAGE IV
     Dosage: 80 MG/M2, OTHER
     Route: 042
     Dates: start: 20080408, end: 20080408
  7. CISPLATIN [Concomitant]
     Dosage: 60 MG/M2, OTHER
     Route: 042
     Dates: start: 20080508, end: 20080617
  8. GEMZAR [Suspect]
     Indication: LUNG ADENOCARCINOMA STAGE IV
     Dosage: 1000 MG/M2, OTHER
     Route: 042
     Dates: start: 20080408, end: 20080415
  9. EPIVIR [Concomitant]
     Indication: HIV INFECTION
     Dosage: 300 MG, DAILY (1/D)
     Route: 048
     Dates: start: 19970101

REACTIONS (5)
  - NEUTROPHIL COUNT DECREASED [None]
  - EXTRADURAL HAEMATOMA [None]
  - PLATELET COUNT DECREASED [None]
  - WHITE BLOOD CELL COUNT DECREASED [None]
  - DECREASED APPETITE [None]
